FAERS Safety Report 6073413-2 (Version None)
Quarter: 2009Q1

REPORT INFORMATION
  Report Type: 
  Country: None (occurrence: None)
  Receive Date: 20090205
  Receipt Date: 20090205
  Transmission Date: 20090719
  Serious: Yes (Hospitalization)
  Sender: FDA-Public Use
  Company Number: 2008IT004170

PATIENT
  Age: 42 Year
  Sex: Female

DRUGS (5)
  1. ALOXI [Suspect]
     Indication: PROPHYLAXIS OF NAUSEA AND VOMITING
     Dosage: 0.25 MG, SINGLE, IV BOLUS
     Route: 040
     Dates: start: 20080605, end: 20080605
  2. 5-FU /00098801/ (FLUOROURACIL) [Concomitant]
  3. CYCLOPHOSPHAMIDE [Concomitant]
  4. EPIRUBICIN [Concomitant]
  5. DEXAMETHASONE TAB [Concomitant]

REACTIONS (2)
  - GRAND MAL CONVULSION [None]
  - HEART RATE INCREASED [None]
